FAERS Safety Report 8342045-5 (Version None)
Quarter: 2012Q2

REPORT INFORMATION
  Report Type: 
  Country: None (occurrence: None)
  Receive Date: 20120507
  Receipt Date: 20120427
  Transmission Date: 20120825
  Serious: Yes (Death)
  Sender: FDA-Public Use
  Company Number: BR-ROCHE-1063819

PATIENT
  Sex: Male

DRUGS (6)
  1. MABTHERA [Suspect]
     Route: 042
     Dates: start: 20110920, end: 20111005
  2. MABTHERA [Suspect]
     Route: 042
     Dates: start: 20100601
  3. MABTHERA [Suspect]
     Route: 042
     Dates: start: 20110101
  4. MABTHERA [Suspect]
     Indication: RHEUMATOID ARTHRITIS
     Route: 042
     Dates: start: 20090606
  5. MABTHERA [Suspect]
     Route: 042
     Dates: start: 20091101
  6. MABTHERA [Suspect]
     Dates: start: 20090706

REACTIONS (1)
  - ACUTE RESPIRATORY FAILURE [None]
